FAERS Safety Report 5605362-5 (Version None)
Quarter: 2008Q1

REPORT INFORMATION
  Report Type: 
  Country: None (occurrence: None)
  Receive Date: 20080123
  Receipt Date: 20080108
  Transmission Date: 20080703
  Serious: Yes (Hospitalization, Other)
  Sender: FDA-Public Use
  Company Number: TPA2007A00832

PATIENT
  Age: 73 Year
  Sex: Female
  Weight: 85.7298 kg

DRUGS (13)
  1. ACTOS [Suspect]
     Indication: TYPE 2 DIABETES MELLITUS
     Dosage: 30 MG, 1 IN 1 D, PER ORAL
     Route: 048
     Dates: start: 20060101, end: 20071209
  2. METFORMIN HCL [Concomitant]
  3. DIOVAN [Concomitant]
  4. KLOR-CON [Concomitant]
  5. VERAPAMIL (VERAPAMIL) (240 MILLIGRAM, TABLETS) [Concomitant]
  6. ZOCOR [Concomitant]
  7. ATENOLOL [Concomitant]
  8. LASIX [Concomitant]
  9. GLYBURIDE (GLIBENCLAMIDE) (3 MILLIGRAM, TABLETS) [Concomitant]
  10. FOLIC ACID [Concomitant]
  11. ASPIRIN [Concomitant]
  12. CHROMIUM (CHROMIUM) [Concomitant]
  13. MULTIVITAMIN [Concomitant]

REACTIONS (11)
  - FALL [None]
  - GINGIVAL PAIN [None]
  - INCISION SITE INFECTION [None]
  - LUMBAR VERTEBRAL FRACTURE [None]
  - MUSCULAR WEAKNESS [None]
  - PAIN IN EXTREMITY [None]
  - PHARYNGEAL OEDEMA [None]
  - PHARYNGOLARYNGEAL PAIN [None]
  - RIB FRACTURE [None]
  - STAPHYLOCOCCAL INFECTION [None]
  - TOOTH DISORDER [None]
